FAERS Safety Report 4807898-3 (Version None)
Quarter: 2005Q4

REPORT INFORMATION
  Report Type: 
  Country: None (occurrence: None)
  Receive Date: 20051024
  Receipt Date: 20050714
  Transmission Date: 20060501
  Serious: Yes (Hospitalization)
  Sender: FDA-Public Use
  Company Number: US-MERCK-0507USA02053

PATIENT
  Age: 65 Year
  Sex: Female
  Weight: 70 kg

DRUGS (40)
  1. VIOXX [Suspect]
     Indication: SHOULDER PAIN
     Route: 048
     Dates: start: 20020910, end: 20040101
  2. VIOXX [Suspect]
     Indication: CARPAL TUNNEL SYNDROME
     Route: 048
     Dates: start: 20020910, end: 20040101
  3. ACETAMINOPHEN AND CODEINE [Concomitant]
     Route: 065
  4. ACULAR [Concomitant]
     Route: 065
  5. ALBUTEROL [Concomitant]
     Route: 065
  6. AMBIEN [Concomitant]
     Route: 065
  7. CLINDAMYCIN HYDROCHLORIDE [Concomitant]
     Route: 065
  8. COREG [Concomitant]
     Route: 065
  9. ENALAPRIL MALEATE [Concomitant]
     Route: 065
  10. FLONASE [Concomitant]
     Route: 065
  11. FUROSEMIDE [Concomitant]
     Route: 065
  12. HUMALOG MIX 75/25 [Concomitant]
     Route: 065
  13. HYDROCHLOROTHIAZIDE [Concomitant]
     Route: 065
  14. HYDROCODONE BITARTRATE + ACETAMINOPHEN [Concomitant]
     Route: 065
  15. ISOSORBIDE [Concomitant]
     Route: 065
  16. KLOR-CON [Concomitant]
     Route: 065
  17. LANOXIN [Concomitant]
     Route: 065
  18. LEVAQUIN [Concomitant]
     Route: 065
  19. METHYLPREDNISOLONE [Concomitant]
     Route: 065
  20. METOPROLOL [Concomitant]
     Route: 065
  21. MINITRAN [Concomitant]
     Route: 065
  22. MUCO-FEN DM [Concomitant]
     Route: 065
  23. NEURONTIN [Concomitant]
     Route: 065
  24. NITROLINGUAL [Concomitant]
     Route: 065
  25. NITROQUICK [Concomitant]
     Route: 065
  26. NORVASC [Concomitant]
     Route: 065
  27. NYSTOP [Concomitant]
     Route: 065
  28. PENICILLIN VK [Concomitant]
     Route: 065
  29. PLAVIX [Concomitant]
     Route: 065
  30. POTASSIUM CHLORIDE [Concomitant]
     Route: 065
  31. PREDNISONE [Concomitant]
     Route: 065
  32. PREMARIN [Concomitant]
     Route: 065
  33. ACETAMINOPHEN AND PROPOXYPHENE NAPSYLATE [Concomitant]
     Route: 065
  34. SINGULAIR [Concomitant]
     Route: 065
  35. TOBRADEX [Concomitant]
     Route: 065
  36. TOPROL-XL [Concomitant]
     Route: 065
  37. TORSEMIDE [Concomitant]
     Route: 065
  38. TRAZODONE HYDROCHLORIDE [Concomitant]
     Route: 065
  39. TUSSI-BID [Concomitant]
     Route: 065
  40. ZOCOR [Concomitant]
     Route: 048

REACTIONS (14)
  - ANGINA PECTORIS [None]
  - AZOTAEMIA [None]
  - CARDIAC FAILURE [None]
  - CATARACT [None]
  - CHEST PAIN [None]
  - CHOLECYSTITIS [None]
  - CORONARY ARTERY DISEASE [None]
  - DEPRESSION [None]
  - INJURY [None]
  - INSOMNIA [None]
  - ISCHAEMIC CARDIOMYOPATHY [None]
  - MEMORY IMPAIRMENT [None]
  - MYOCARDIAL INFARCTION [None]
  - VENTRICULAR TACHYCARDIA [None]
